FAERS Safety Report 9183347 (Version 1)
Quarter: 2013Q1

REPORT INFORMATION
  Report Type: Spontaneous
  Country: US (occurrence: US)
  Receive Date: 20130322
  Receipt Date: 20130322
  Transmission Date: 20140127
  Serious: No
  Sender: FDA-Public Use
  Company Number: US-009507513-1303USA010863

PATIENT
  Sex: Male

DRUGS (2)
  1. REMERON [Suspect]
     Dosage: 30 MG, QD
     Route: 048
     Dates: start: 2009
  2. TRAZODONE HYDROCHLORIDE [Concomitant]

REACTIONS (1)
  - False positive investigation result [Unknown]
